APPROVED DRUG PRODUCT: SARENIN
Active Ingredient: SARALASIN ACETATE
Strength: EQ 0.6MG BASE/ML
Dosage Form/Route: INJECTABLE;INJECTION
Application: N018009 | Product #001
Applicant: PROCTER AND GAMBLE PHARMACEUTICALS INC SUB PROCTER AND GAMBLE CO
Approved: Approved Prior to Jan 1, 1982 | RLD: No | RS: No | Type: DISCN